FAERS Safety Report 4612718-6 (Version None)
Quarter: 2005Q1

REPORT INFORMATION
  Report Type: 
  Country: None (occurrence: None)
  Receive Date: 20050317
  Receipt Date: 20050317
  Transmission Date: 20050727
  Serious: Yes (Hospitalization)
  Sender: FDA-Public Use
  Company Number: None

PATIENT
  Age: 58 Year
  Sex: Male
  Weight: 66 kg

DRUGS (10)
  1. TRAMADOL   50MG [Suspect]
     Indication: PAIN
     Dosage: 100MG   TID   ORAL
     Route: 048
     Dates: start: 20041117, end: 20041213
  2. ACETAMINOPHEN 300MG/CODEINE 30 MG [Concomitant]
  3. ALBUTEROL SULFATE AND IPRATROPIUM BROMIDE [Concomitant]
  4. CYCLOBENZAPRINE HCL [Concomitant]
  5. DICLOFENAC [Concomitant]
  6. HYDROCHLOROTHIAZIDE [Concomitant]
  7. KETOCONAZOLE [Concomitant]
  8. MULTI-VITAMIN [Concomitant]
  9. ADALAT CC [Concomitant]
  10. DILANTIN [Concomitant]

REACTIONS (3)
  - CONVULSION [None]
  - DRUG ABUSER [None]
  - HYPERTENSION [None]
